FAERS Safety Report 8593799-4 (Version None)
Quarter: 2012Q3

REPORT INFORMATION
  Report Type: 
  Country: None (occurrence: None)
  Receive Date: 20120814
  Receipt Date: 20120809
  Transmission Date: 20120928
  Serious: Yes (Other)
  Sender: FDA-Public Use
  Company Number: JP-VERTEX PHARMACEUTICALS INC.-AE-2012-012038

PATIENT
  Age: 63 Year
  Sex: Male

DRUGS (9)
  1. PEG-INTRON [Concomitant]
     Indication: HEPATITIS C
     Route: 058
     Dates: start: 20120613
  2. RIBAVIRIN [Concomitant]
     Indication: HEPATITIS C
     Route: 048
     Dates: start: 20120613, end: 20120627
  3. RIBAVIRIN [Concomitant]
     Route: 048
     Dates: start: 20120705, end: 20120711
  4. RIBAVIRIN [Concomitant]
     Route: 048
     Dates: start: 20120627, end: 20120705
  5. LANSOPRAZOLE [Concomitant]
     Route: 048
     Dates: start: 20120613
  6. RIBAVIRIN [Concomitant]
     Route: 048
     Dates: start: 20120711
  7. LOXONIN [Concomitant]
     Route: 048
     Dates: start: 20120613
  8. PREDNISOLONE [Concomitant]
     Route: 048
     Dates: start: 20120711
  9. TELAVIC (TELAPREVIR) [Suspect]
     Indication: HEPATITIS C
     Route: 048
     Dates: start: 20120613

REACTIONS (3)
  - RASH [None]
  - HAEMOGLOBIN DECREASED [None]
  - BLOOD URIC ACID INCREASED [None]
